FAERS Safety Report 9821088 (Version 1)
Quarter: 2014Q1

REPORT INFORMATION
  Report Type: Spontaneous
  Country: US (occurrence: US)
  Receive Date: 20140116
  Receipt Date: 20140116
  Transmission Date: 20141002
  Serious: No
  Sender: FDA-Public Use
  Company Number: US-009507513-1401USA005479

PATIENT
  Sex: Female

DRUGS (2)
  1. NUVARING [Suspect]
     Dosage: UNK
     Route: 067
     Dates: start: 20131203
  2. ANTIMICROBIAL (UNSPECIFIED) [Concomitant]

REACTIONS (2)
  - Acne [Unknown]
  - Depression [Unknown]
